FAERS Safety Report 9587801 (Version 1)
Quarter: 2013Q4

REPORT INFORMATION
  Report Type: Spontaneous
  Country: DK (occurrence: FR)
  Receive Date: 20131003
  Receipt Date: 20131003
  Transmission Date: 20140711
  Serious: Yes (Hospitalization)
  Sender: FDA-Public Use
  Company Number: FR-FRI-1000049375

PATIENT
  Age: 83 Year
  Sex: Female

DRUGS (5)
  1. CITALOPRAM [Suspect]
     Route: 048
  2. CORDARONE [Interacting]
     Dosage: 1 DF
     Route: 048
     Dates: end: 20130821
  3. XARELTO [Interacting]
     Dosage: 1 DF
     Route: 048
     Dates: end: 20130821
  4. XANAX [Interacting]
     Dosage: 1 DF
     Route: 048
     Dates: end: 20130821
  5. LAMICTAL [Concomitant]
     Route: 048
     Dates: end: 20130821

REACTIONS (2)
  - Subcutaneous haematoma [Recovered/Resolved]
  - Drug interaction [Recovered/Resolved]
